FAERS Safety Report 15948939 (Version 1)
Quarter: 2019Q1

REPORT INFORMATION
  Report Type: Spontaneous
  Country: FI (occurrence: FI)
  Receive Date: 20190212
  Receipt Date: 20190212
  Transmission Date: 20190417
  Serious: Yes (Death)
  Sender: FDA-Public Use
  Company Number: FI-ACCORD-106296

PATIENT
  Age: 59 Year
  Sex: Male

DRUGS (2)
  1. CAPECITABINE. [Suspect]
     Active Substance: CAPECITABINE
     Indication: GASTROINTESTINAL CARCINOMA
     Dates: start: 20180125, end: 20180222
  2. OXALIPLATIN. [Suspect]
     Active Substance: OXALIPLATIN
     Indication: GASTROINTESTINAL CARCINOMA
     Dates: start: 20180125, end: 20180222

REACTIONS (4)
  - Fatigue [Fatal]
  - Brain injury [Fatal]
  - Ventricular fibrillation [Fatal]
  - Neuropathy peripheral [Fatal]

NARRATIVE: CASE EVENT DATE: 20180222
